FAERS Safety Report 7690517-9 (Version None)
Quarter: 2011Q3

REPORT INFORMATION
  Report Type: 
  Country: None (occurrence: None)
  Receive Date: 20110818
  Receipt Date: 20110811
  Transmission Date: 20111222
  Serious: Yes (Other)
  Sender: FDA-Public Use
  Company Number: US-PFIZER INC-2011185830

PATIENT
  Sex: Female
  Weight: 88.4 kg

DRUGS (10)
  1. COLACE [Concomitant]
     Dosage: 50 MG, UNK
     Route: 048
  2. SUTENT [Suspect]
     Dosage: 50 MG, 1 CAPSULE DAILY X 28 DAYS, THEN 14 DAYS OFF
     Route: 048
     Dates: end: 20110728
  3. GLYBURIDE [Concomitant]
     Dosage: 1.25 MG, UNK
     Route: 048
  4. LIPITOR [Concomitant]
     Dosage: 10 MG, UNK
     Route: 048
  5. LEVOTHYROXINE [Concomitant]
     Dosage: 100 UG, UNK
     Route: 048
  6. GABAPENTIN [Concomitant]
     Dosage: 100 MG, UNK
     Route: 048
  7. ACETYLSALICYLIC ACID [Concomitant]
     Dosage: 81 MG, UNK
     Route: 048
  8. PERCOCET [Concomitant]
     Dosage: UNK
     Route: 048
  9. METFORMIN [Concomitant]
     Dosage: 500 MG, UNK
     Route: 048
  10. DEXAMETHASONE [Concomitant]
     Dosage: 0.25 MG, UNK
     Route: 048

REACTIONS (2)
  - CLAVICLE FRACTURE [None]
  - FALL [None]
